FAERS Safety Report 16966386 (Version 1)
Quarter: 2019Q4

REPORT INFORMATION
  Report Type: Spontaneous
  Country: IT (occurrence: IT)
  Receive Date: 20191028
  Receipt Date: 20191028
  Transmission Date: 20200122
  Serious: Yes (Hospitalization)
  Sender: FDA-Public Use
  Company Number: IT-PFIZER INC-2019459885

PATIENT
  Age: 58 Year
  Sex: Female

DRUGS (1)
  1. TIGECYCLINE. [Suspect]
     Active Substance: TIGECYCLINE
     Indication: SKIN WOUND
     Dosage: 200 MG, 1X/DAY
     Route: 042
     Dates: start: 20180908, end: 20180924

REACTIONS (3)
  - Off label use [Unknown]
  - Product use issue [Unknown]
  - Jaundice cholestatic [Unknown]

NARRATIVE: CASE EVENT DATE: 20180924
